FAERS Safety Report 18286553 (Version 1)
Quarter: 2020Q3

REPORT INFORMATION
  Report Type: Other
  Country: DE (occurrence: DE)
  Receive Date: 20200920
  Receipt Date: 20200920
  Transmission Date: 20201103
  Serious: Yes (Other)
  Sender: FDA-Public Use
  Company Number: DE-ROCHE-2616390

PATIENT
  Sex: Female

DRUGS (8)
  1. ASA [Concomitant]
     Active Substance: ASPIRIN
  2. ROACTEMRA [Suspect]
     Active Substance: TOCILIZUMAB
     Indication: RHEUMATOID ARTHRITIS
  3. CORTISONE [Suspect]
     Active Substance: CORTISONE
     Route: 065
  4. VALSARTAN. [Concomitant]
     Active Substance: VALSARTAN
  5. NOVORAPID [Concomitant]
     Active Substance: INSULIN ASPART
     Dosage: DOSE/ FREQUENCY: 2?1?1?0 IU
  6. ROACTEMRA [Suspect]
     Active Substance: TOCILIZUMAB
     Indication: GIANT CELL ARTERITIS
     Dosage: PEN
     Route: 042
     Dates: start: 20200228
  7. CORTISONE [Suspect]
     Active Substance: CORTISONE
     Indication: PRODUCT USED FOR UNKNOWN INDICATION
     Route: 065
  8. TORASEMIDE [Concomitant]
     Active Substance: TORSEMIDE

REACTIONS (2)
  - Headache [Not Recovered/Not Resolved]
  - Retinal detachment [Not Recovered/Not Resolved]
